FAERS Safety Report 26116015 (Version 2)
Quarter: 2025Q4

REPORT INFORMATION
  Report Type: Spontaneous
  Country: CA (occurrence: CA)
  Receive Date: 20251203
  Receipt Date: 20251231
  Transmission Date: 20260119
  Serious: Yes (Hospitalization)
  Sender: TEVA
  Company Number: CA-TEVA-VS-3398183

PATIENT
  Age: 57 Year
  Sex: Female

DRUGS (1)
  1. AMOXICILLIN [Suspect]
     Active Substance: AMOXICILLIN
     Indication: Gingivitis
     Route: 065

REACTIONS (1)
  - Diarrhoea haemorrhagic [Recovering/Resolving]
